FAERS Safety Report 8331608-9 (Version None)
Quarter: 2012Q2

REPORT INFORMATION
  Report Type: 
  Country: None (occurrence: None)
  Receive Date: 20120502
  Receipt Date: 20120419
  Transmission Date: 20120825
  Serious: No
  Sender: FDA-Public Use
  Company Number: US-AMGEN-USASP2012024797

PATIENT
  Age: 54 Year
  Sex: Female

DRUGS (2)
  1. ENBREL [Suspect]
     Indication: RHEUMATOID ARTHRITIS
     Dosage: 50 MG, QWK
     Dates: start: 20110516
  2. TREXALL [Concomitant]
     Dosage: 1 MG, UNK
     Dates: start: 20100501

REACTIONS (7)
  - EPISTAXIS [None]
  - WEIGHT INCREASED [None]
  - CONTUSION [None]
  - INSOMNIA [None]
  - CHILLS [None]
  - FEELING HOT [None]
  - RHEUMATOID ARTHRITIS [None]
